FAERS Safety Report 4379748-3 (Version None)
Quarter: 2004Q2

REPORT INFORMATION
  Report Type: 
  Country: None (occurrence: None)
  Receive Date: 20040617
  Receipt Date: 20040607
  Transmission Date: 20050107
  Serious: Yes (Hospitalization)
  Sender: FDA-Public Use
  Company Number: IT-GLAXOSMITHKLINE-B0335568A

PATIENT
  Age: 83 Year
  Sex: Male

DRUGS (2)
  1. GLAZIDIM [Suspect]
     Indication: BRONCHITIS
     Dosage: 2G PER DAY
     Route: 042
     Dates: start: 20040507, end: 20040507
  2. ANTIBIOTICS [Concomitant]
     Dosage: 400MG PER DAY
     Route: 048
     Dates: start: 20040507, end: 20040507

REACTIONS (2)
  - DYSPNOEA [None]
  - ERYTHEMA [None]
